FAERS Safety Report 18998567 (Version 1)
Quarter: 2021Q1

REPORT INFORMATION
  Report Type: Spontaneous
  Country: DE (occurrence: DE)
  Receive Date: 20210312
  Receipt Date: 20210312
  Transmission Date: 20210420
  Serious: Yes (Hospitalization, Other)
  Sender: FDA-Public Use
  Company Number: DE-AUROBINDO-AUR-APL-2021-009254

PATIENT
  Age: 84 Year
  Sex: Female

DRUGS (5)
  1. BUPIVACAINE. [Suspect]
     Active Substance: BUPIVACAINE
     Indication: PAIN
     Dosage: 0.5% OF 3 MILLILITER
     Route: 042
  2. BUPIVACAINE. [Suspect]
     Active Substance: BUPIVACAINE
     Dosage: 0.1% OF 500 MILLILITER
     Route: 042
  3. FENTANYL. [Concomitant]
     Active Substance: FENTANYL
     Indication: PRODUCT USED FOR UNKNOWN INDICATION
     Dosage: UNK
     Route: 042
  4. BUPIVACAINE. [Suspect]
     Active Substance: BUPIVACAINE
     Dosage: TWO DOSES OF 0.25% OF 5 MILLILITER
     Route: 042
  5. BUPIVACAINE. [Suspect]
     Active Substance: BUPIVACAINE
     Dosage: CUMULATIVE DOSE OF 43 MILLIGRAM
     Route: 042

REACTIONS (10)
  - Chills [Unknown]
  - Restlessness [Unknown]
  - Feeling cold [Unknown]
  - Hypertension [Unknown]
  - Ventricular extrasystoles [Recovered/Resolved]
  - Arrhythmia [Unknown]
  - Tachycardia [Recovered/Resolved]
  - Confusional state [Unknown]
  - Tetany [Unknown]
  - Neurotoxicity [Unknown]
